FAERS Safety Report 6864051-X (Version None)
Quarter: 2010Q3

REPORT INFORMATION
  Report Type: 
  Country: None (occurrence: None)
  Receive Date: 20100721
  Receipt Date: 20100713
  Transmission Date: 20110219
  Serious: Yes (Hospitalization)
  Sender: FDA-Public Use
  Company Number: US-GENENTECH-304237

PATIENT
  Sex: Female

DRUGS (4)
  1. RITUXIMAB [Suspect]
     Indication: IMMUNOSUPPRESSION
     Dosage: 375 MG/M2, 1/WEEK
     Route: 042
     Dates: start: 20091109
  2. SUSPECTED DRUG [Suspect]
     Indication: GLYCOGEN STORAGE DISEASE TYPE II
     Dosage: 20 MG/KG, 1/WEEK
     Route: 042
     Dates: start: 20091110
  3. METHOTREXATE [Suspect]
     Indication: IMMUNOSUPPRESSION
     Dosage: 0.4 MG/KG, UNK
     Route: 058
     Dates: start: 20091110, end: 20091210
  4. IMMUNE GLOBULIN NOS [Suspect]
     Indication: IMMUNOGLOBULINS DECREASED

REACTIONS (1)
  - CLOSTRIDIUM DIFFICILE COLITIS [None]
